FAERS Safety Report 5031547-5 (Version None)
Quarter: 2006Q2

REPORT INFORMATION
  Report Type: 
  Country: None (occurrence: None)
  Receive Date: 20060616
  Receipt Date: 20060608
  Transmission Date: 20061013
  Serious: Yes (Hospitalization)
  Sender: FDA-Public Use
  Company Number: 2006-BP-06478RO

PATIENT
  Age: 69 Year
  Sex: Male

DRUGS (5)
  1. FUROSEMIDE TABLETS USP, 20 MG (FUROSEMIDE) [Suspect]
     Dosage: PO
     Route: 048
  2. COVERSYL (PERINDOPRIL) [Suspect]
     Dosage: 4 MG QD (4 MG), PO
     Route: 048
  3. ALDACTONE [Suspect]
     Dosage: 25 MG QD (25 MG), PO
     Route: 048
  4. RABEPRAZOLE SODIUM [Suspect]
     Dosage: 20 MG QD (20 MG), PO
     Route: 048
  5. HEPARIN [Suspect]
     Dosage: IV
     Route: 042
     Dates: start: 20060207, end: 20060210

REACTIONS (3)
  - HEPARIN-INDUCED THROMBOCYTOPENIA [None]
  - MITRAL VALVE REPLACEMENT [None]
  - TRICUSPID VALVE REPAIR [None]
